FAERS Safety Report 26091532 (Version 1)
Quarter: 2025Q4

REPORT INFORMATION
  Report Type: Spontaneous
  Country: EU (occurrence: EU)
  Receive Date: 20251126
  Receipt Date: 20251126
  Transmission Date: 20260117
  Serious: Yes (Other)
  Sender: TEVA
  Company Number: None

PATIENT
  Age: 70 Year
  Sex: Male
  Weight: 73 kg

DRUGS (1)
  1. ALPRAZOLAM [Suspect]
     Active Substance: ALPRAZOLAM
     Indication: Generalised anxiety disorder
     Dosage: 1 MG AT BEDTIME,ALPRAZOLAM RATIOPHARM
     Route: 048
     Dates: start: 20251026, end: 20251029

REACTIONS (5)
  - Abnormal dreams [Recovered/Resolved]
  - Depressed mood [Recovered/Resolved]
  - Anhedonia [Recovered/Resolved]
  - Somnolence [Recovered/Resolved]
  - Product substitution issue [Unknown]

NARRATIVE: CASE EVENT DATE: 20251026
